FAERS Safety Report 9034390 (Version 1)
Quarter: 2013Q1

REPORT INFORMATION
  Report Type: Spontaneous
  Country: GB (occurrence: None)
  Receive Date: 20130111
  Receipt Date: 20130111
  Transmission Date: 20140127
  Serious: Yes (Life-Threatening)
  Sender: FDA-Public Use
  Company Number: 2013-00027

PATIENT
  Age: 66 Year
  Sex: Female
  Weight: 104 kg

DRUGS (6)
  1. SIMVASTATIN [Suspect]
     Indication: PRODUCT USED FOR UNKNOWN INDICATION
     Route: 048
     Dates: start: 2004, end: 20120917
  2. CANDESARTAN [Concomitant]
  3. ETODOLAC [Concomitant]
  4. FEXOFENADINE [Concomitant]
  5. LANSOPRAZOLE [Concomitant]
  6. METFORMIN [Concomitant]

REACTIONS (11)
  - Arthralgia [None]
  - Cardiomyopathy [None]
  - Dysstasia [None]
  - Dyspepsia [None]
  - Flatulence [None]
  - Mobility decreased [None]
  - Muscular weakness [None]
  - Neuropathy peripheral [None]
  - Dyshidrotic eczema [None]
  - Dyspnoea [None]
  - Local swelling [None]
